FAERS Safety Report 9012142 (Version 1)
Quarter: 2013Q1

REPORT INFORMATION
  Report Type: Spontaneous
  Country: US (occurrence: US)
  Receive Date: 20130114
  Receipt Date: 20130114
  Transmission Date: 20140127
  Serious: No
  Sender: FDA-Public Use
  Company Number: US-PFIZER INC-2013013357

PATIENT
  Sex: Female

DRUGS (3)
  1. CHANTIX [Suspect]
     Dosage: UNK
  2. NEURONTIN [Suspect]
     Indication: NEURALGIA
     Dosage: UNK
  3. VICODIN [Suspect]
     Indication: PAIN MANAGEMENT
     Dosage: UNK

REACTIONS (2)
  - Thought blocking [Unknown]
  - Aphasia [Unknown]
